FAERS Safety Report 7388509 (Version 5)
Quarter: 2017Q1

REPORT INFORMATION
  Report Type: Report from Study
  Country: FR (occurrence: FR)
  Receive Date: 20100514
  Receipt Date: 20170316
  Transmission Date: 20170429
  Serious: Yes (Hospitalization)
  Sender: FDA-Public Use
  Company Number: FR-AMGEN-KDC410920

PATIENT
  Age: 44 Year
  Sex: Female
  Weight: 64 kg

DRUGS (10)
  1. CYCLOPHOSPHAMIDE. [Concomitant]
     Active Substance: CYCLOPHOSPHAMIDE
     Dosage: UNK UNK, UNK
     Dates: start: 20091210
  2. BICARBONATE [Concomitant]
     Active Substance: BICARBONATE ION
     Dosage: UNK UNK, UNK
     Dates: start: 20091216
  3. CETYLPYRIDINIUM CHLORIDE. [Concomitant]
     Active Substance: CETYLPYRIDINIUM CHLORIDE
     Dosage: UNK UNK, UNK
     Dates: start: 20091216
  4. GLYCEROL + PARAFFIN + LIQUID + WHITE SOFT PARAFFIN [Concomitant]
     Dosage: UNK UNK, UNK
     Dates: start: 20091216
  5. PANITUMUMAB [Suspect]
     Active Substance: PANITUMUMAB
     Indication: BREAST CANCER
     Dosage: 585 MG, UNK
     Route: 041
     Dates: start: 20091210
  6. DOCETAXEL. [Suspect]
     Active Substance: DOCETAXEL
     Indication: BREAST CANCER
     Dosage: 166 MG, UNK
     Route: 041
     Dates: start: 20100304
  7. EPIRUBICIN [Concomitant]
     Active Substance: EPIRUBICIN
     Dosage: UNK UNK, UNK
     Dates: start: 20091210
  8. MEPROZINE [Concomitant]
     Dosage: UNK UNK, UNK
     Dates: start: 20100101
  9. FLUOROURACIL. [Concomitant]
     Active Substance: FLUOROURACIL
     Dosage: UNK UNK, UNK
     Dates: start: 20091210
  10. DOXYCYCLINE. [Concomitant]
     Active Substance: DOXYCYCLINE
     Dosage: 100 MG, UNK
     Dates: start: 20100121

REACTIONS (2)
  - Febrile neutropenia [Recovered/Resolved]
  - Febrile bone marrow aplasia [Recovered/Resolved]

NARRATIVE: CASE EVENT DATE: 20100403
